FAERS Safety Report 21720073 (Version 2)
Quarter: 2022Q4

REPORT INFORMATION
  Report Type: Spontaneous
  Country: FR (occurrence: FR)
  Receive Date: 20221213
  Receipt Date: 20221216
  Transmission Date: 20230113
  Serious: Yes (Death, Life-Threatening, Other)
  Sender: FDA-Public Use
  Company Number: None

PATIENT

DRUGS (1)
  1. SUBUTEX [Suspect]
     Active Substance: BUPRENORPHINE HYDROCHLORIDE
     Indication: Drug withdrawal maintenance therapy
     Dosage: 16 MILLIGRAM, QD
     Route: 060
     Dates: start: 2012, end: 20221119

REACTIONS (4)
  - Multiple organ dysfunction syndrome [Fatal]
  - Cardio-respiratory arrest [Recovered/Resolved]
  - Hypoglycaemia [Not Recovered/Not Resolved]
  - Hypoxia [Recovering/Resolving]

NARRATIVE: CASE EVENT DATE: 20221119
